FAERS Safety Report 9349164 (Version 1)
Quarter: 2013Q2

REPORT INFORMATION
  Report Type: Spontaneous
  Country: US (occurrence: US)
  Receive Date: 20130614
  Receipt Date: 20130614
  Transmission Date: 20140414
  Serious: Yes (Other)
  Sender: FDA-Public Use
  Company Number: US-ELI_LILLY_AND_COMPANY-US201306002170

PATIENT
  Sex: Female

DRUGS (2)
  1. HUMULIN REGULAR [Suspect]
     Route: 058
  2. HUMALOG LISPRO [Suspect]

REACTIONS (2)
  - Diabetic ketoacidosis [Unknown]
  - Blood glucose increased [Not Recovered/Not Resolved]
